FAERS Safety Report 9426919 (Version 1)
Quarter: 2013Q3

REPORT INFORMATION
  Report Type: Not Available
  Country: FR (occurrence: FR)
  Receive Date: 20130730
  Receipt Date: 20130730
  Transmission Date: 20140515
  Serious: Yes (Death, Hospitalization)
  Sender: FDA-Public Use
  Company Number: FR-ASTELLAS-2013EU006446

PATIENT
  Age: 62 Year
  Sex: Female

DRUGS (7)
  1. PROGRAF [Suspect]
     Dosage: 4 MG, UID/QD
     Route: 048
     Dates: start: 201109
  2. COLCHIMAX /00728901/ [Suspect]
     Dosage: 1 DF, UID/QD
     Route: 048
     Dates: start: 20130703, end: 20130705
  3. RAMIPRIL EG [Suspect]
     Dosage: 1 DF, BID
     Route: 048
     Dates: end: 20130705
  4. FUROSEMIDE [Suspect]
     Dosage: 20 MG, UID/QD
     Route: 048
     Dates: end: 20130705
  5. ESOMEPRAZOLE EG [Suspect]
     Dosage: 1 DF, UID/QD
     Route: 048
     Dates: start: 201109, end: 20130705
  6. KARDEGIC [Suspect]
     Dosage: 1 DF, UID/QD
     Route: 048
     Dates: end: 20130705
  7. ZOLPIDEM [Suspect]
     Dosage: 10 MG, UID/QD
     Route: 048
     Dates: end: 20130705

REACTIONS (2)
  - Intentional drug misuse [Unknown]
  - Pancreatitis acute [Fatal]
